FAERS Safety Report 24132640 (Version 1)
Quarter: 2024Q3

REPORT INFORMATION
  Report Type: Spontaneous
  Country: US (occurrence: None)
  Receive Date: 20240723
  Receipt Date: 20240723
  Transmission Date: 20241016
  Serious: Yes (Other)
  Sender: Public
  Company Number: None

PATIENT
  Age: 58 Year
  Sex: Female
  Weight: 65.25 kg

DRUGS (8)
  1. PROLIA [Suspect]
     Active Substance: DENOSUMAB
     Indication: Osteoporosis
     Dosage: OTHER FREQUENCY : 1 TIME EVERY 6 MON?
     Route: 058
     Dates: start: 20231026
  2. PACEMAKER [Concomitant]
  3. DEVICE [Concomitant]
     Active Substance: DEVICE
  4. CARVEDILOL [Concomitant]
     Active Substance: CARVEDILOL
  5. LOSARTAN [Concomitant]
     Active Substance: LOSARTAN
  6. SYNTHROID [Concomitant]
     Active Substance: LEVOTHYROXINE SODIUM
  7. OMEPRAZOLE [Concomitant]
     Active Substance: OMEPRAZOLE
  8. VITAMIN-CALCIUM [Concomitant]

REACTIONS (5)
  - Arthralgia [None]
  - Joint swelling [None]
  - Arthritis [None]
  - Muscle tightness [None]
  - Hypertension [None]

NARRATIVE: CASE EVENT DATE: 20240426
